FAERS Safety Report 13673929 (Version 2)
Quarter: 2017Q3

REPORT INFORMATION
  Report Type: Report from Study
  Country: FR (occurrence: FR)
  Receive Date: 20170621
  Receipt Date: 20170731
  Transmission Date: 20171127
  Serious: Yes (Hospitalization)
  Sender: FDA-Public Use
  Company Number: FR-ROCHE-1953451

PATIENT
  Age: 86 Year
  Sex: Female

DRUGS (14)
  1. RANIBIZUMAB. [Suspect]
     Active Substance: RANIBIZUMAB
     Indication: VISUAL IMPAIRMENT
     Dosage: 0.5 MG, (IN THE LEFT EYE)
     Route: 031
     Dates: start: 20140801, end: 20140801
  2. RANIBIZUMAB. [Suspect]
     Active Substance: RANIBIZUMAB
     Indication: RETINAL VEIN OCCLUSION
     Dosage: 0.5 MG, (IN THE LEFT EYE)
     Route: 031
     Dates: start: 20140829
  3. RANIBIZUMAB. [Suspect]
     Active Substance: RANIBIZUMAB
     Dosage: 0.5 MG, LEFT EYE
     Route: 031
     Dates: start: 20151120
  4. RANIBIZUMAB. [Suspect]
     Active Substance: RANIBIZUMAB
     Dosage: 0.5 MG, (IN THE LEFT EYE)
     Route: 031
     Dates: start: 20140926
  5. RANIBIZUMAB. [Suspect]
     Active Substance: RANIBIZUMAB
     Dosage: 0.5 MG, LEFT EYE
     Route: 031
     Dates: start: 20141205
  6. RANIBIZUMAB. [Suspect]
     Active Substance: RANIBIZUMAB
     Dosage: 0.5 MG, LEFT EYE
     Route: 031
     Dates: start: 20150220
  7. RANIBIZUMAB. [Suspect]
     Active Substance: RANIBIZUMAB
     Dosage: 0.5 MG, LEFT EYE
     Route: 031
     Dates: start: 20150522
  8. RANIBIZUMAB. [Suspect]
     Active Substance: RANIBIZUMAB
     Dosage: 0.5 MG, LEFT EYE
     Route: 031
     Dates: start: 20160429, end: 20160429
  9. RANIBIZUMAB. [Suspect]
     Active Substance: RANIBIZUMAB
     Dosage: 0.5 MG, LEFT EYE
     Route: 031
     Dates: start: 20150102
  10. RANIBIZUMAB. [Suspect]
     Active Substance: RANIBIZUMAB
     Dosage: 0.5 MG, LEFT EYE
     Route: 031
     Dates: start: 20151002
  11. RANIBIZUMAB. [Suspect]
     Active Substance: RANIBIZUMAB
     Dosage: 0.5 MG, LEFT EYE
     Route: 031
     Dates: start: 20150403, end: 20150403
  12. RANIBIZUMAB. [Suspect]
     Active Substance: RANIBIZUMAB
     Dosage: 0.5 MG, LEFT EYE
     Route: 031
     Dates: start: 20150814
  13. RANIBIZUMAB. [Suspect]
     Active Substance: RANIBIZUMAB
     Dosage: 0.5 MG, LEFT EYE
     Route: 031
     Dates: start: 20160108
  14. RANIBIZUMAB. [Suspect]
     Active Substance: RANIBIZUMAB
     Dosage: 0.5 MG, LEFT EYE
     Route: 031
     Dates: start: 20160304, end: 20160429

REACTIONS (4)
  - Drug ineffective [Unknown]
  - Eye paraesthesia [Recovered/Resolved]
  - Ocular discomfort [Recovered/Resolved]
  - Ischaemic stroke [Recovered/Resolved]

NARRATIVE: CASE EVENT DATE: 20140801
